FAERS Safety Report 9782668 (Version 1)
Quarter: 2013Q4

REPORT INFORMATION
  Report Type: Spontaneous
  Country: US (occurrence: US)
  Receive Date: 20131226
  Receipt Date: 20131226
  Transmission Date: 20140711
  Serious: Yes (Other)
  Sender: FDA-Public Use
  Company Number: US-009507513-1312USA010119

PATIENT
  Sex: Female

DRUGS (1)
  1. ALENDRONATE SODIUM [Suspect]
     Dosage: UNK, QW
     Route: 048
     Dates: start: 20131205

REACTIONS (3)
  - Deafness [Unknown]
  - Myalgia [Unknown]
  - Arthralgia [Unknown]
